FAERS Safety Report 26087247 (Version 2)
Quarter: 2025Q4

REPORT INFORMATION
  Report Type: Spontaneous
  Country: US (occurrence: US)
  Receive Date: 20251125
  Receipt Date: 20251127
  Transmission Date: 20260118
  Serious: Yes (Hospitalization, Other)
  Sender: BRISTOL-MYERS SQUIBB COMPANY
  Company Number: US-BRISTOL-MYERS SQUIBB COMPANY-2025-159031

PATIENT
  Age: 72 Year
  Sex: Male
  Weight: 99.34 kg

DRUGS (1)
  1. REVLIMID [Suspect]
     Active Substance: LENALIDOMIDE
     Indication: Plasma cell myeloma
     Dosage: ONCE DAILY FOR 14 DAYS ON AND 7 DAYS OFF
     Route: 048

REACTIONS (3)
  - Pneumonia [Recovering/Resolving]
  - Pulmonary oedema [Recovering/Resolving]
  - Hypoxia [Recovering/Resolving]
